FAERS Safety Report 17477493 (Version 1)
Quarter: 2020Q1

REPORT INFORMATION
  Report Type: Spontaneous
  Country: US (occurrence: US)
  Receive Date: 20200228
  Receipt Date: 20200228
  Transmission Date: 20200409
  Serious: No
  Sender: FDA-Public Use
  Company Number: US-SMITH AND NEPHEW, INC-2019SMT00043

PATIENT
  Age: 86 Year
  Sex: Male
  Weight: 84.81 kg

DRUGS (4)
  1. ASPIRIN. [Concomitant]
     Active Substance: ASPIRIN
  2. COLLAGENASE SANTYL [Suspect]
     Active Substance: COLLAGENASE CLOSTRIDIUM HISTOLYTICUM
     Indication: ABSCESS
     Dosage: TOPICALLY TO THE RIGHT LEG, SIX INCHES ABOVE THE ANKLE, 1X/DAY PER THE DOCTOR^S INSTRUCTIONS
     Route: 061
     Dates: start: 201905
  3. COLLAGENASE SANTYL [Suspect]
     Active Substance: COLLAGENASE CLOSTRIDIUM HISTOLYTICUM
     Dosage: UNK UNK, 2X/DAY
     Route: 061
  4. SIMVASTATIN. [Concomitant]
     Active Substance: SIMVASTATIN
     Dosage: UNK, 3X/WEEK

REACTIONS (2)
  - Product use in unapproved indication [Not Recovered/Not Resolved]
  - Burning sensation [Not Recovered/Not Resolved]

NARRATIVE: CASE EVENT DATE: 201905
